FAERS Safety Report 8563377-1 (Version None)
Quarter: 2012Q3

REPORT INFORMATION
  Report Type: 
  Country: None (occurrence: None)
  Receive Date: 20120802
  Receipt Date: 20120711
  Transmission Date: 20120928
  Serious: Yes (Hospitalization, Disabling)
  Sender: FDA-Public Use
  Company Number: US-ABBOTT-12P-163-0919662-00

PATIENT
  Sex: Male

DRUGS (7)
  1. ATIVAN [Concomitant]
     Indication: ANXIETY
  2. HUMIRA [Suspect]
     Indication: PSORIASIS
     Route: 058
     Dates: start: 20110410
  3. LISINOPRIL [Concomitant]
     Indication: HYPERTENSION
  4. HUMIRA [Suspect]
     Route: 058
     Dates: start: 20120401
  5. LORCET-HD [Concomitant]
     Indication: BONE PAIN
     Dosage: 10/650 MG
  6. BUSPAR [Concomitant]
     Indication: ANXIETY
     Dates: end: 20120501
  7. LORCET-HD [Concomitant]
     Indication: OSTEONECROSIS

REACTIONS (3)
  - HUMERUS FRACTURE [None]
  - POSTOPERATIVE ADHESION [None]
  - OSTEONECROSIS [None]
